FAERS Safety Report 9886934 (Version 1)
Quarter: 2014Q1

REPORT INFORMATION
  Report Type: Other
  Country: DE (occurrence: DE)
  Receive Date: 20140211
  Receipt Date: 20140211
  Transmission Date: 20141002
  Serious: Yes (Death, Hospitalization)
  Sender: FDA-Public Use
  Company Number: DE-LUPIN PHARMACEUTICALS INC.-E2B_00001672

PATIENT
  Age: 77 Year
  Sex: Female
  Weight: 54 kg

DRUGS (6)
  1. LEVETIRACETAM 500 [Suspect]
     Indication: GRAND MAL CONVULSION
     Route: 048
     Dates: start: 201308, end: 20131120
  2. LEVETIRACETAM 500 [Suspect]
     Indication: GRAND MAL CONVULSION
     Route: 048
     Dates: start: 201308, end: 20131120
  3. DONEPEZIL [Suspect]
     Indication: DEMENTIA
     Route: 048
     Dates: start: 201308, end: 20131120
  4. ACETYL SALICYLIC ACID [Concomitant]
     Indication: CORONARY ARTERY DISEASE
     Route: 048
     Dates: end: 20131206
  5. IRBESARTAN [Concomitant]
     Indication: HYPERTENSION
     Route: 048
     Dates: end: 20131120
  6. MOXONIDIN [Concomitant]
     Indication: HYPERTENSION
     Route: 048
     Dates: end: 201312

REACTIONS (2)
  - Acute hepatic failure [Fatal]
  - Hepatorenal syndrome [Fatal]
